FAERS Safety Report 15418659 (Version 1)
Quarter: 2018Q3

REPORT INFORMATION
  Report Type: Spontaneous
  Country: DE (occurrence: DE)
  Receive Date: 20180924
  Receipt Date: 20180924
  Transmission Date: 20181010
  Serious: Yes (Disabling)
  Sender: FDA-Public Use
  Company Number: DE-TORRENT-00010283

PATIENT
  Age: 75 Year
  Sex: Male
  Weight: 60 kg

DRUGS (1)
  1. LEVOFLOXACIN. [Suspect]
     Active Substance: LEVOFLOXACIN
     Indication: BRONCHITIS
     Dosage: 1 X 500 MG
     Route: 048
     Dates: start: 20180309, end: 20180315

REACTIONS (1)
  - Bursitis [Recovered/Resolved with Sequelae]

NARRATIVE: CASE EVENT DATE: 20180315
